FAERS Safety Report 4724341-3 (Version None)
Quarter: 2005Q3

REPORT INFORMATION
  Report Type: 
  Country: None (occurrence: None)
  Receive Date: 20050720
  Receipt Date: 20050720
  Transmission Date: 20060218
  Serious: Yes (Hospitalization)
  Sender: FDA-Public Use
  Company Number: None

PATIENT
  Age: 28 Year
  Sex: Male
  Weight: 43 kg

DRUGS (5)
  1. VIDEX EC [Suspect]
     Indication: HIV INFECTION
     Dosage: 25 MG PO QD (SEVERAL YEARS)
     Route: 048
  2. VIREAD [Suspect]
     Indication: HIV INFECTION
     Dosage: 300 MG PO QD  2-3 MOS
     Route: 048
  3. NELFINAVIR [Concomitant]
  4. LAMIVUDINE [Concomitant]
  5. SULFAMETHOXAZOLE AND TRIMETHOPRIM [Concomitant]

REACTIONS (9)
  - BLOOD PHOSPHORUS DECREASED [None]
  - DRY MOUTH [None]
  - FANCONI SYNDROME [None]
  - GLUCOSE URINE PRESENT [None]
  - NAUSEA [None]
  - PANCREATITIS [None]
  - PROTEINURIA [None]
  - VOMITING [None]
  - WEIGHT DECREASED [None]
